FAERS Safety Report 9448615 (Version 1)
Quarter: 2013Q3

REPORT INFORMATION
  Report Type: Report from Study
  Country: AR (occurrence: AR)
  Receive Date: 20130808
  Receipt Date: 20130808
  Transmission Date: 20140515
  Serious: Yes (Hospitalization, Other)
  Sender: FDA-Public Use
  Company Number: PHHY2013AR085412

PATIENT
  Sex: Female

DRUGS (1)
  1. DIOVAN [Suspect]
     Indication: HYPERTENSION
     Dosage: 160 MG, BID (ONE IN THE MORNING, ONE IN THE AFTERNOON)
     Route: 048
     Dates: start: 201305

REACTIONS (5)
  - Tibia fracture [Recovering/Resolving]
  - Foot fracture [Recovering/Resolving]
  - Fibula fracture [Recovering/Resolving]
  - Abasia [Unknown]
  - Fall [Recovered/Resolved]
